FAERS Safety Report 7115978-5 (Version None)
Quarter: 2010Q4

REPORT INFORMATION
  Report Type: 
  Country: None (occurrence: None)
  Receive Date: 20101122
  Receipt Date: 20101116
  Transmission Date: 20110411
  Serious: Yes (Hospitalization)
  Sender: FDA-Public Use
  Company Number: JP-SHIRE-SPV1-2010-02010

PATIENT
  Age: 63 Year
  Sex: Male

DRUGS (2)
  1. FOSRENOL [Suspect]
     Indication: HYPERPHOSPHATAEMIA
     Dosage: UNK
  2. PURGATIVE AND CLYSTERS [Concomitant]

REACTIONS (1)
  - ILEUS PARALYTIC [None]
